FAERS Safety Report 24326918 (Version 1)
Quarter: 2024Q3

REPORT INFORMATION
  Report Type: Report from Study
  Country: US (occurrence: US)
  Receive Date: 20240917
  Receipt Date: 20240917
  Transmission Date: 20241016
  Serious: Yes (Hospitalization)
  Sender: ROCHE
  Company Number: US-ROCHE-10000076458

PATIENT
  Age: 44 Year
  Sex: Female

DRUGS (1)
  1. OCREVUS [Suspect]
     Active Substance: OCRELIZUMAB
     Indication: Primary progressive multiple sclerosis
     Dosage: PREVIOUS DATE OF TREATMENT = 18/JUL/2024
     Route: 065
     Dates: start: 20240718

REACTIONS (2)
  - COVID-19 [Unknown]
  - Seizure [Unknown]

NARRATIVE: CASE EVENT DATE: 20240730
